FAERS Safety Report 7245762-3 (Version None)
Quarter: 2011Q1

REPORT INFORMATION
  Report Type: 
  Country: None (occurrence: None)
  Receive Date: 20110126
  Receipt Date: 20110119
  Transmission Date: 20110831
  Serious: No
  Sender: FDA-Public Use
  Company Number: US-PFIZER INC-2010155546

PATIENT
  Sex: Female
  Weight: 87.1 kg

DRUGS (4)
  1. ERGOCALCIFEROL [Concomitant]
     Dosage: UNK
  2. PANTOPRAZOLE [Concomitant]
     Dosage: 40 MG, UNK
  3. GUANFACINE [Concomitant]
     Dosage: 0.75 MG, UNK
  4. SYNAREL [Suspect]
     Indication: ENDOMETRIOSIS
     Dosage: 200 UG 3X/DAY

REACTIONS (3)
  - INCORRECT STORAGE OF DRUG [None]
  - DRUG INEFFECTIVE [None]
  - MENOPAUSE [None]
